FAERS Safety Report 8965922 (Version 2)
Quarter: 2016Q4

REPORT INFORMATION
  Report Type: Spontaneous
  Country: JP (occurrence: JP)
  Receive Date: 20121214
  Receipt Date: 20161214
  Transmission Date: 20170207
  Serious: Yes (Other)
  Sender: FDA-Public Use
  Company Number: JP-JNJFOC-20121200730

PATIENT
  Age: 68 Year
  Sex: Male
  Weight: 61 kg

DRUGS (3)
  1. UNISIA [Concomitant]
     Active Substance: AMLODIPINE BESYLATE\CANDESARTAN CILEXETIL
     Route: 065
  2. PROGRAF [Suspect]
     Active Substance: TACROLIMUS\TACROLIMUS ANHYDROUS
     Indication: RHEUMATOID ARTHRITIS
     Route: 065
     Dates: start: 20091229
  3. NATRIX [Concomitant]
     Active Substance: INDAPAMIDE
     Route: 065

REACTIONS (7)
  - Renal function test abnormal [Unknown]
  - Knee arthroplasty [Unknown]
  - Bone hyperpigmentation [Not Recovered/Not Resolved]
  - Alanine aminotransferase abnormal [Unknown]
  - Off label use [Unknown]
  - Post procedural infection [Unknown]
  - Aspartate aminotransferase abnormal [Unknown]

NARRATIVE: CASE EVENT DATE: 20111129
